FAERS Safety Report 25264161 (Version 1)
Quarter: 2025Q2

REPORT INFORMATION
  Report Type: Spontaneous
  Country: GB (occurrence: GB)
  Receive Date: 20250502
  Receipt Date: 20250502
  Transmission Date: 20250717
  Serious: Yes (Other)
  Sender: AUROBINDO
  Company Number: GB-MHRA-MED-202504230851060790-GDBVY

PATIENT
  Sex: Male

DRUGS (1)
  1. LINEZOLID [Suspect]
     Active Substance: LINEZOLID
     Indication: Adverse drug reaction
     Dosage: 600 MILLIGRAM, TWO TIMES A DAY (600MG BD)
     Route: 065
     Dates: end: 20240410

REACTIONS (1)
  - Visual acuity reduced [Recovered/Resolved]
